FAERS Safety Report 24265263 (Version 1)
Quarter: 2024Q3

REPORT INFORMATION
  Report Type: Spontaneous
  Country: US (occurrence: US)
  Receive Date: 20240829
  Receipt Date: 20240829
  Transmission Date: 20241017
  Serious: Yes (Hospitalization, Other)
  Sender: VERTEX
  Company Number: US-VERTEX PHARMACEUTICALS-2024-011863

PATIENT
  Sex: Female

DRUGS (51)
  1. TRIKAFTA [Suspect]
     Active Substance: ELEXACAFTOR\IVACAFTOR\TEZACAFTOR
     Indication: Cystic fibrosis
     Dosage: 2 ORANGE TABLETS IN AM AND 1 BLUE TABLET IN PM
     Route: 048
     Dates: start: 20210225
  2. AZTREONAM LYSINE [Suspect]
     Active Substance: AZTREONAM LYSINE
     Indication: Cystic fibrosis
     Dosage: 1 ML (75MG), 28 DAYS ON, 28 DAYS OFF
     Route: 055
     Dates: start: 20150421
  3. ACID REDUCER [Concomitant]
  4. ADVAIR HFA [Concomitant]
     Active Substance: FLUTICASONE PROPIONATE\SALMETEROL XINAFOATE
     Dosage: 250/50
  5. ACETAMINOPHEN AND CODEINE [Concomitant]
     Active Substance: ACETAMINOPHEN\CODEINE PHOSPHATE
     Dosage: 300-30MG
  6. BENTYL [Concomitant]
     Active Substance: DICYCLOMINE HYDROCHLORIDE
  7. BENZONATATE [Concomitant]
     Active Substance: BENZONATATE
  8. CALCIUM [Concomitant]
     Active Substance: CALCIUM
  9. CALCIUM CITRATE\CHOLECALCIFEROL [Concomitant]
     Active Substance: CALCIUM CITRATE\CHOLECALCIFEROL
     Dosage: 315 + 250 MG
  10. CARAFATE [Concomitant]
     Active Substance: SUCRALFATE
  11. CAYSTON [Concomitant]
     Active Substance: AZTREONAM
  12. CLARITIN [Concomitant]
     Active Substance: LORATADINE
  13. CREON [Concomitant]
     Active Substance: PANCRELIPASE AMYLASE\PANCRELIPASE LIPASE\PANCRELIPASE PROTEASE
     Dosage: 24000 UNIT
  14. CRESEMBA [Concomitant]
     Active Substance: ISAVUCONAZONIUM SULFATE
  15. CYCLOBENZAPRINE [Concomitant]
     Active Substance: CYCLOBENZAPRINE
  16. ELIQUIS [Concomitant]
     Active Substance: APIXABAN
  17. FAMOTIDINE [Concomitant]
     Active Substance: FAMOTIDINE
  18. FLONASE ALLERGY RELIEF [Concomitant]
     Active Substance: FLUTICASONE PROPIONATE
  19. GUAIFENESIN [Concomitant]
     Active Substance: GUAIFENESIN
  20. LEVALBUTEROL [Concomitant]
     Active Substance: LEVALBUTEROL
     Dosage: 1.25MG/3ML
  21. LEVALBUTEROL [Concomitant]
     Active Substance: LEVALBUTEROL
     Dosage: 0.63 MG
     Route: 055
  22. LEVAQUIN [Concomitant]
     Active Substance: LEVOFLOXACIN
  23. LORATADINE [Concomitant]
     Active Substance: LORATADINE
  24. MELATONIN [Concomitant]
     Active Substance: MELATONIN
     Dosage: 3 MG
  25. METAXALONE [Concomitant]
     Active Substance: METAXALONE
  26. MUCINEX [Concomitant]
     Active Substance: GUAIFENESIN
  27. OXYCODONE AND ACETAMINOPHEN [Concomitant]
     Active Substance: ACETAMINOPHEN\OXYCODONE HYDROCHLORIDE
     Dosage: 7.5-325
  28. PANCREAZE [Concomitant]
     Active Substance: PANCRELIPASE AMYLASE\PANCRELIPASE LIPASE\PANCRELIPASE PROTEASE
     Dosage: 2600 UNIT
  29. PANTOPRAZOLE [Concomitant]
     Active Substance: PANTOPRAZOLE
     Dosage: 20 MG
  30. PANTOPRAZOLE [Concomitant]
     Active Substance: PANTOPRAZOLE
     Dosage: 40 MG
  31. PERCOCET [Concomitant]
     Active Substance: ACETAMINOPHEN\OXYCODONE HYDROCHLORIDE
     Dosage: 2.5-325
  32. PREDNISONE [Concomitant]
     Active Substance: PREDNISONE
  33. PROCHLORPERAZINE [Concomitant]
     Active Substance: PROCHLORPERAZINE
  34. PROMETHAZINE [Concomitant]
     Active Substance: PROMETHAZINE HYDROCHLORIDE
  35. SALINE [Concomitant]
     Active Substance: SODIUM CHLORIDE
  36. SEROQUEL [Concomitant]
     Active Substance: QUETIAPINE FUMARATE
  37. SERTRALINE [Concomitant]
     Active Substance: SERTRALINE HYDROCHLORIDE
     Dosage: 100 MG
  38. SERTRALINE [Concomitant]
     Active Substance: SERTRALINE HYDROCHLORIDE
     Dosage: 50 MG
  39. SODIUM CHLORIDE [Concomitant]
     Active Substance: SODIUM CHLORIDE
     Dosage: 3%
     Route: 055
  40. SODIUM CHLORIDE [Concomitant]
     Active Substance: SODIUM CHLORIDE
     Dosage: 10%
     Route: 055
  41. TOBRAMYCIN [Concomitant]
     Active Substance: TOBRAMYCIN\TOBRAMYCIN SULFATE
     Dosage: 300MG/4ML
  42. TOPAMAX [Concomitant]
     Active Substance: TOPIRAMATE
  43. TRAMADOL HCL [Concomitant]
     Active Substance: TRAMADOL HYDROCHLORIDE
  44. TRAZODONE [Concomitant]
     Active Substance: TRAZODONE HYDROCHLORIDE
  45. URSODIOL [Concomitant]
     Active Substance: URSODIOL
     Dosage: 300 MG
  46. URSODIOL [Concomitant]
     Active Substance: URSODIOL
     Dosage: 250 MG
  47. VITAMIN D3 [Concomitant]
     Active Substance: CHOLECALCIFEROL
     Dosage: 5000 UNIT
  48. XIFAXAN [Concomitant]
     Active Substance: RIFAXIMIN
  49. ZOLOFT [Concomitant]
     Active Substance: SERTRALINE HYDROCHLORIDE
  50. AZITHROMYCIN [Concomitant]
     Active Substance: AZITHROMYCIN
  51. PULMOZYME [Concomitant]
     Active Substance: DORNASE ALFA

REACTIONS (9)
  - Diarrhoea [Unknown]
  - Cystic fibrosis [Unknown]
  - Small intestinal obstruction [Unknown]
  - Abnormal faeces [Unknown]
  - Mucous stools [Unknown]
  - Steatorrhoea [Unknown]
  - Wheezing [Unknown]
  - Flatulence [Unknown]
  - Vomiting [Unknown]

NARRATIVE: CASE EVENT DATE: 20240101
